FAERS Safety Report 9470969 (Version 1)
Quarter: 2013Q3

REPORT INFORMATION
  Report Type: Spontaneous
  Country: GR (occurrence: GR)
  Receive Date: 20130822
  Receipt Date: 20130822
  Transmission Date: 20140515
  Serious: Yes (Death, Other)
  Sender: FDA-Public Use
  Company Number: GR-CELGENEUS-066-21880-13081263

PATIENT
  Sex: 0

DRUGS (3)
  1. REVLIMID [Suspect]
     Indication: PLASMA CELL MYELOMA
     Route: 048
  2. BORTEZOMIB [Suspect]
     Indication: PLASMA CELL MYELOMA
     Route: 041
  3. DEXAMETHASONE [Suspect]
     Indication: PLASMA CELL MYELOMA
     Route: 048

REACTIONS (19)
  - Death [Fatal]
  - Pneumonia [Fatal]
  - Thrombocytopenia [Unknown]
  - Anaemia [Unknown]
  - Neutropenia [Unknown]
  - Peripheral motor neuropathy [Unknown]
  - Hyperaesthesia [Unknown]
  - Neuralgia [Unknown]
  - Burning sensation [Unknown]
  - Oedema peripheral [Unknown]
  - Constipation [Unknown]
  - Diarrhoea [Unknown]
  - Polyneuropathy [Unknown]
  - Peripheral sensory neuropathy [Unknown]
  - Paraesthesia [Unknown]
  - Hypoaesthesia [Unknown]
  - Fatigue [Unknown]
  - Asthenia [Unknown]
  - Plasma cell myeloma [Unknown]
